FAERS Safety Report 7723362-6 (Version None)
Quarter: 2011Q3

REPORT INFORMATION
  Report Type: 
  Country: None (occurrence: None)
  Receive Date: 20110901
  Receipt Date: 20110325
  Transmission Date: 20111222
  Serious: No
  Sender: FDA-Public Use
  Company Number: US-KINGPHARMUSA00001-K201100348

PATIENT
  Sex: Female
  Weight: 83.9 kg

DRUGS (6)
  1. DECADRON [Concomitant]
     Dosage: UNK
     Dates: start: 20110303, end: 20110308
  2. SONATA [Suspect]
     Indication: INSOMNIA
     Dosage: UNK
     Route: 048
     Dates: start: 20110303, end: 20110303
  3. VELCADE [Suspect]
     Indication: MULTIPLE MYELOMA
     Dosage: UNK
     Dates: start: 20110210, end: 20110303
  4. SONATA [Suspect]
     Dosage: UNK
     Route: 048
     Dates: start: 20110308, end: 20110308
  5. VELCADE [Suspect]
     Dosage: UNK
     Dates: start: 20110308
  6. DECADRON [Concomitant]
     Dosage: UNK
     Dates: start: 20110308, end: 20110308

REACTIONS (4)
  - PRURITUS [None]
  - URTICARIA [None]
  - ERYTHEMA [None]
  - PALLOR [None]
